FAERS Safety Report 4891278-9 (Version None)
Quarter: 2006Q1

REPORT INFORMATION
  Report Type: 
  Country: None (occurrence: None)
  Receive Date: 20060125
  Receipt Date: 20051013
  Transmission Date: 20060701
  Serious: Yes (Disabling)
  Sender: FDA-Public Use
  Company Number: US-ROCHE-421327

PATIENT
  Age: 58 Year
  Sex: Female
  Weight: 59 kg

DRUGS (1)
  1. BONIVA [Suspect]
     Indication: DRUG USE FOR UNKNOWN INDICATION
     Route: 048
     Dates: start: 20050725, end: 20050725

REACTIONS (7)
  - ABDOMINAL PAIN UPPER [None]
  - BACK PAIN [None]
  - ERYTHEMA [None]
  - MUSCULOSKELETAL PAIN [None]
  - OEDEMA PERIPHERAL [None]
  - PAIN IN EXTREMITY [None]
  - SHOULDER PAIN [None]
